FAERS Safety Report 4360541-2 (Version None)
Quarter: 2004Q2

REPORT INFORMATION
  Report Type: 
  Country: None (occurrence: None)
  Receive Date: 20040519
  Receipt Date: 20040507
  Transmission Date: 20050107
  Serious: Yes (Other)
  Sender: FDA-Public Use
  Company Number: AT-GLAXOSMITHKLINE-B0332297A

PATIENT
  Age: 11 Year
  Sex: Male

DRUGS (2)
  1. AUGMENTIN [Suspect]
     Route: 048
  2. PARKEMED [Concomitant]

REACTIONS (1)
  - DIARRHOEA HAEMORRHAGIC [None]
